FAERS Safety Report 8833985 (Version 1)
Quarter: 2012Q4

REPORT INFORMATION
  Report Type: Report from Study
  Country: DE (occurrence: FR)
  Receive Date: 20121010
  Receipt Date: 20121010
  Transmission Date: 20130627
  Serious: Yes (Disabling)
  Sender: FDA-Public Use
  Company Number: FR-BAXTER-2012BAX019152

PATIENT
  Age: 11 Year
  Sex: Male
  Weight: 28.7 kg

DRUGS (6)
  1. ENDOXAN 50 MG, COMPRIM? ENROB? [Suspect]
     Indication: SARCOMA
     Route: 048
     Dates: start: 20110610
  2. ENDOXAN 50 MG, COMPRIM? ENROB? [Suspect]
     Route: 048
     Dates: start: 20120509
  3. NAVELBINE [Suspect]
     Indication: SARCOMA
     Route: 042
     Dates: start: 20110610
  4. NAVELBINE [Suspect]
     Route: 042
     Dates: start: 20120427
  5. BEVACIZUMAB [Suspect]
     Indication: SARCOMA
     Route: 042
     Dates: start: 20101130
  6. BEVACIZUMAB [Suspect]
     Route: 042
     Dates: start: 20120427

REACTIONS (1)
  - Hearing impaired [Not Recovered/Not Resolved]
